FAERS Safety Report 13050318 (Version 1)
Quarter: 2016Q4

REPORT INFORMATION
  Report Type: Spontaneous
  Country: HU (occurrence: HU)
  Receive Date: 20161221
  Receipt Date: 20161221
  Transmission Date: 20170207
  Serious: Yes (Hospitalization, Other)
  Sender: FDA-Public Use
  Company Number: HU-GLAXOSMITHKLINE-HU2016GSK187428

PATIENT
  Age: 44 Year
  Sex: Female

DRUGS (1)
  1. LAMOTRIGINE. [Suspect]
     Active Substance: LAMOTRIGINE
     Indication: PRODUCT USED FOR UNKNOWN INDICATION

REACTIONS (6)
  - Toxic epidermal necrolysis [Unknown]
  - Respiratory symptom [Unknown]
  - Dermatitis bullous [Unknown]
  - Pyrexia [Unknown]
  - Rash [Unknown]
  - Odynophagia [Unknown]
